FAERS Safety Report 9838991 (Version 1)
Quarter: 2014Q1

REPORT INFORMATION
  Report Type: Report from Study
  Country: ES (occurrence: ES)
  Receive Date: 20140123
  Receipt Date: 20140123
  Transmission Date: 20141002
  Serious: Yes (Other)
  Sender: FDA-Public Use
  Company Number: ES-TEVA-457955USA

PATIENT
  Age: 64 Year
  Sex: Male

DRUGS (3)
  1. BENDAMUSTINE [Suspect]
     Dosage: CYCLIC
     Route: 042
     Dates: start: 20120709, end: 20121119
  2. VELCADE [Concomitant]
     Dosage: UNKNOWN/D
     Route: 042
     Dates: start: 20120709, end: 20121203
  3. PREDNISONE [Concomitant]
     Dosage: UNKNOWN/D
     Route: 065
     Dates: start: 20120709, end: 20121115

REACTIONS (1)
  - Blood stem cell harvest failure [Recovered/Resolved]
